FAERS Safety Report 7724439-1 (Version None)
Quarter: 2011Q3

REPORT INFORMATION
  Report Type: 
  Country: None (occurrence: None)
  Receive Date: 20110901
  Receipt Date: 20110824
  Transmission Date: 20111222
  Serious: Yes (Hospitalization)
  Sender: FDA-Public Use
  Company Number: US-GLAXOSMITHKLINE-A0802283A

PATIENT
  Age: 62 Year
  Sex: Male
  Weight: 84.5 kg

DRUGS (14)
  1. IMDUR [Concomitant]
  2. KLOR-CON [Concomitant]
  3. ADVAIR DISKUS 100/50 [Concomitant]
  4. GLUCOTROL [Concomitant]
  5. COUMADIN [Concomitant]
  6. AVANDIA [Suspect]
     Indication: DIABETES MELLITUS
     Dosage: 4MG PER DAY
     Route: 048
     Dates: start: 19990601, end: 20060901
  7. ZANTAC [Concomitant]
  8. TOPROL-XL [Concomitant]
  9. LISINOPRIL [Concomitant]
  10. LASIX [Concomitant]
  11. LIPITOR [Concomitant]
  12. ATARAX [Concomitant]
  13. GLUCOPHAGE [Concomitant]
  14. COMBIVENT [Concomitant]

REACTIONS (3)
  - CEREBROVASCULAR ACCIDENT [None]
  - MYOCARDIAL INFARCTION [None]
  - TRANSIENT ISCHAEMIC ATTACK [None]
